FAERS Safety Report 9798070 (Version 1)
Quarter: 2014Q1

REPORT INFORMATION
  Report Type: Spontaneous
  Country: FR (occurrence: None)
  Receive Date: 20140102
  Receipt Date: 20140102
  Transmission Date: 20141002
  Serious: Yes (Other)
  Sender: FDA-Public Use
  Company Number: 2051492

PATIENT
  Age: 64 Year
  Sex: Male
  Weight: 52 kg

DRUGS (5)
  1. CARBOPLATIN [Suspect]
     Indication: NASAL SINUS CANCER
     Route: 042
     Dates: start: 20111209, end: 20111209
  2. CETUXIMAB [Concomitant]
  3. XYZALL [Concomitant]
  4. DEXAMETHASONE [Concomitant]
  5. RANITIDINE [Concomitant]

REACTIONS (14)
  - Hypersensitivity [None]
  - Malaise [None]
  - Oxygen saturation decreased [None]
  - Hypertension [None]
  - Tachycardia [None]
  - Headache [None]
  - Neurotoxicity [None]
  - Lymphadenopathy [None]
  - Disease recurrence [None]
  - Lung neoplasm [None]
  - Neck pain [None]
  - Skin mass [None]
  - Inflammation [None]
  - Dysphagia [None]
